FAERS Safety Report 7980059-5 (Version None)
Quarter: 2011Q4

REPORT INFORMATION
  Report Type: 
  Country: None (occurrence: None)
  Receive Date: 20111214
  Receipt Date: 20111212
  Transmission Date: 20120403
  Serious: Yes (Death, Hospitalization, Disabling, Other)
  Sender: FDA-Public Use
  Company Number: PHEH2007US12546

PATIENT
  Sex: Female

DRUGS (28)
  1. SENOKOT                                 /UNK/ [Concomitant]
     Route: 048
  2. PREDNISONE TAB [Concomitant]
  3. TRILISATE [Concomitant]
  4. AMBIEN [Concomitant]
     Dosage: 5 MG, QHS PRN
  5. COLACE [Concomitant]
  6. TEMAZEPAM [Concomitant]
  7. AREDIA [Suspect]
     Dosage: 90 MG, UNK
     Route: 042
  8. LEXAPRO [Concomitant]
  9. IBUPROFEN [Concomitant]
  10. LOVENOX [Concomitant]
     Dosage: 40 MG, UNK
     Route: 058
  11. XANAX [Concomitant]
     Dosage: 0.5 MG, PRN
  12. ZITHROMAX [Concomitant]
     Dosage: 250 MG, QD
     Route: 048
  13. LEVAQUIN [Concomitant]
     Dosage: 500 MG, QD
     Route: 048
  14. LIDODERM [Concomitant]
  15. NYSTATIN [Concomitant]
  16. ZITHROMAX [Concomitant]
     Dosage: 500 MG, QD
     Route: 048
  17. ALKERAN [Concomitant]
  18. REVLIMID [Concomitant]
     Dosage: 1 DF, QD
  19. HYDROCODONE [Concomitant]
     Dosage: 5 MG, Q6H
     Route: 048
  20. ACETAMINOPHEN [Concomitant]
  21. ASPIRIN [Concomitant]
  22. LYRICA [Concomitant]
     Dosage: 75 MG, BID
     Route: 048
  23. OXYCONTIN [Concomitant]
  24. THALIDOMIDE [Concomitant]
  25. ZOMETA [Suspect]
     Dosage: 4 MG, UNK
     Route: 042
     Dates: end: 20060101
  26. DECADRON [Concomitant]
  27. VICODIN [Concomitant]
  28. ZOLPIDEM [Concomitant]
     Dosage: 5 MG, QHS
     Route: 048

REACTIONS (74)
  - OSTEOARTHRITIS [None]
  - PAIN [None]
  - INSOMNIA [None]
  - CONFUSIONAL STATE [None]
  - SCIATICA [None]
  - ISCHAEMIA [None]
  - GAIT DISTURBANCE [None]
  - SCOLIOSIS [None]
  - DEHYDRATION [None]
  - PANCYTOPENIA [None]
  - CARDIOMEGALY [None]
  - CATARACT [None]
  - BACK PAIN [None]
  - OSTEONECROSIS OF JAW [None]
  - DEFORMITY [None]
  - OPEN WOUND [None]
  - HEADACHE [None]
  - RASH [None]
  - SPINAL COLUMN STENOSIS [None]
  - WEIGHT INCREASED [None]
  - HYPOKALAEMIA [None]
  - VISION BLURRED [None]
  - COMPRESSION FRACTURE [None]
  - INTERVERTEBRAL DISC PROTRUSION [None]
  - PARAPROTEINAEMIA [None]
  - ALOPECIA [None]
  - NAUSEA [None]
  - HAEMORRHAGE INTRACRANIAL [None]
  - GOITRE [None]
  - PYREXIA [None]
  - OEDEMA PERIPHERAL [None]
  - HERPES ZOSTER [None]
  - DRY SKIN [None]
  - PELVIC FRACTURE [None]
  - RIB FRACTURE [None]
  - ANXIETY [None]
  - COUGH [None]
  - CONSTIPATION [None]
  - SWELLING FACE [None]
  - PRURITUS GENERALISED [None]
  - FALL [None]
  - ATELECTASIS [None]
  - PLEURAL FIBROSIS [None]
  - OSTEOPOROSIS [None]
  - FATIGUE [None]
  - METASTASES TO BONE [None]
  - SUBDURAL HAEMATOMA [None]
  - DECREASED APPETITE [None]
  - CHEST PAIN [None]
  - PULMONARY EMBOLISM [None]
  - GASTROENTERITIS [None]
  - BRONCHITIS [None]
  - PNEUMONIA [None]
  - SPINAL OSTEOARTHRITIS [None]
  - PELVIC HAEMATOMA [None]
  - HYPOAESTHESIA [None]
  - DYSPNOEA [None]
  - BONE NEOPLASM MALIGNANT [None]
  - NEURALGIA [None]
  - INFECTION [None]
  - EMOTIONAL DISTRESS [None]
  - NASAL CONGESTION [None]
  - ANAEMIA [None]
  - LUNG NEOPLASM [None]
  - DRY MOUTH [None]
  - PLASMACYTOSIS [None]
  - CHRONIC OBSTRUCTIVE PULMONARY DISEASE [None]
  - DEPRESSION [None]
  - RADIUS FRACTURE [None]
  - MULTIPLE MYELOMA [None]
  - ERYTHEMA [None]
  - NEUROPATHY PERIPHERAL [None]
  - OSTEOPENIA [None]
  - MALAISE [None]
